FAERS Safety Report 8580003-6 (Version None)
Quarter: 2012Q3

REPORT INFORMATION
  Report Type: 
  Country: None (occurrence: None)
  Receive Date: 20120731
  Receipt Date: 20120731
  Transmission Date: 20120928
  Serious: Yes (Other)
  Sender: FDA-Public Use
  Company Number: None

PATIENT
  Age: 27 Year
  Sex: Female
  Weight: 60.3284 kg

DRUGS (1)
  1. PARAGARD T 380A [Suspect]
     Indication: CONTRACEPTION
     Dates: start: 20090427, end: 20120116

REACTIONS (7)
  - MENOMETRORRHAGIA [None]
  - PROCEDURAL PAIN [None]
  - ABDOMINAL PAIN [None]
  - UTERINE DISORDER [None]
  - PROGESTERONE DECREASED [None]
  - OVULATION DISORDER [None]
  - INFLAMMATION [None]
